FAERS Safety Report 6303514-2 (Version None)
Quarter: 2009Q3

REPORT INFORMATION
  Report Type: 
  Country: None (occurrence: None)
  Receive Date: 20090810
  Receipt Date: 20090804
  Transmission Date: 20100115
  Serious: No
  Sender: FDA-Public Use
  Company Number: US-SANOFI-SYNTHELABO-A03200902606

PATIENT
  Sex: Female
  Weight: 78.5 kg

DRUGS (6)
  1. BUSPIRONE HCL [Concomitant]
     Indication: POST-TRAUMATIC STRESS DISORDER
     Route: 065
     Dates: start: 19980110
  2. PLAVIX [Suspect]
     Indication: CARDIAC DISORDER
     Route: 048
     Dates: start: 20090501, end: 20090630
  3. PLAVIX [Suspect]
     Dosage: 4 CLOPIDOGREL 75MG TABLETS (300MG IN TOTAL) AT THE BEGINING OF EACH MONTH FOLLOWED BY 75MG QD
     Route: 048
     Dates: start: 20080901, end: 20090501
  4. ASPIRIN [Concomitant]
     Indication: CARDIAC DISORDER
     Route: 065
     Dates: start: 20080901, end: 20090701
  5. SERTRALINE [Concomitant]
     Indication: POST-TRAUMATIC STRESS DISORDER
     Route: 065
     Dates: start: 19980110
  6. SIMVASTATIN [Concomitant]
     Indication: BLOOD CHOLESTEROL INCREASED
     Route: 065
     Dates: start: 20080709

REACTIONS (11)
  - BLEEDING TIME PROLONGED [None]
  - CONTUSION [None]
  - DIZZINESS [None]
  - DRUG DISPENSING ERROR [None]
  - HEADACHE [None]
  - MUSCLE SPASMS [None]
  - OEDEMA [None]
  - OVERDOSE [None]
  - RASH [None]
  - URINARY TRACT INFECTION [None]
  - VERTIGO [None]
